FAERS Safety Report 5552116-4 (Version None)
Quarter: 2007Q4

REPORT INFORMATION
  Report Type: 
  Country: None (occurrence: None)
  Receive Date: 20071212
  Receipt Date: 20071204
  Transmission Date: 20080405
  Serious: Yes (Hospitalization)
  Sender: FDA-Public Use
  Company Number: FR-GENENTECH-252579

PATIENT
  Sex: Male

DRUGS (6)
  1. MABTHERA [Suspect]
     Indication: LYMPHOMA
     Dosage: 606.5 MG, QD
     Route: 042
     Dates: start: 20070517
  2. METHOTREXATE [Suspect]
     Indication: LYMPHOMA
     Dosage: 15 MG, QD
     Route: 037
     Dates: start: 20070517
  3. ENDOXAN [Suspect]
     Indication: LYMPHOMA
     Dosage: 1940 MG, QD
     Route: 048
     Dates: start: 20070517
  4. DOXORUBICIN HCL [Suspect]
     Indication: LYMPHOMA
     Dosage: 121.5 MG, QD
     Route: 042
  5. BLEOMYCIN [Suspect]
     Indication: LYMPHOMA
     Dosage: 10 MG, QD
     Route: 042
     Dates: start: 20070517
  6. ELDISINE [Suspect]
     Indication: LYMPHOMA
     Dosage: 3.24 MG, QD
     Route: 042
     Dates: start: 20070517

REACTIONS (1)
  - BONE MARROW FAILURE [None]
